FAERS Safety Report 9694820 (Version 1)
Quarter: 2013Q4

REPORT INFORMATION
  Report Type: Spontaneous
  Country: DE (occurrence: DE)
  Receive Date: 20131119
  Receipt Date: 20131119
  Transmission Date: 20140711
  Serious: Yes (Hospitalization, Other)
  Sender: FDA-Public Use
  Company Number: DE-AMGEN-DEUSP2013080135

PATIENT
  Age: 65 Year
  Sex: Female

DRUGS (1)
  1. MIMPARA [Suspect]
     Indication: HYPERPARATHYROIDISM PRIMARY
     Dosage: 30 MG, BID
     Route: 065
     Dates: start: 201311

REACTIONS (2)
  - Hypercalcaemia [Not Recovered/Not Resolved]
  - Hemiparesis [Unknown]
